FAERS Safety Report 25189551 (Version 1)
Quarter: 2025Q2

REPORT INFORMATION
  Report Type: Spontaneous
  Country: HU (occurrence: HU)
  Receive Date: 20250411
  Receipt Date: 20250411
  Transmission Date: 20250716
  Serious: Yes (Life-Threatening, Hospitalization, Other)
  Sender: SANDOZ
  Company Number: HU-SANDOZ-SDZ2024HU029395

PATIENT
  Age: 20 Year
  Sex: Female

DRUGS (1)
  1. CYCLOPHOSPHAMIDE [Suspect]
     Active Substance: CYCLOPHOSPHAMIDE
     Indication: Immunosuppression
     Route: 042

REACTIONS (3)
  - Anaemia [Unknown]
  - Post procedural haemorrhage [Unknown]
  - Traumatic haematoma [Unknown]
